FAERS Safety Report 7234500-6 (Version None)
Quarter: 2011Q1

REPORT INFORMATION
  Report Type: 
  Country: None (occurrence: None)
  Receive Date: 20110119
  Receipt Date: 20110112
  Transmission Date: 20110831
  Serious: Yes (Disabling)
  Sender: FDA-Public Use
  Company Number: JP-MERCK-1101USA01666

PATIENT
  Age: 55 Year
  Sex: Female

DRUGS (1)
  1. JANUVIA [Suspect]
     Route: 048
     Dates: start: 20100916

REACTIONS (1)
  - MUSCULOSKELETAL PAIN [None]
